FAERS Safety Report 9933780 (Version 2)
Quarter: 2014Q1

REPORT INFORMATION
  Report Type: Report from Study
  Country: US (occurrence: US)
  Receive Date: 20140228
  Receipt Date: 20140228
  Transmission Date: 20141002
  Serious: No
  Sender: FDA-Public Use
  Company Number: US-MYLANLABS-2013S1014009

PATIENT
  Age: 59 Year
  Sex: Male

DRUGS (2)
  1. ISOTRETINOIN CAPSULES [Suspect]
     Indication: ACNE
     Route: 048
     Dates: start: 20130429, end: 201305
  2. ISOTRETINOIN CAPSULES [Suspect]
     Indication: ACNE
     Route: 048
     Dates: start: 201305, end: 20130621

REACTIONS (2)
  - Dizziness [Not Recovered/Not Resolved]
  - Alopecia [Not Recovered/Not Resolved]
